FAERS Safety Report 8474190-8 (Version None)
Quarter: 2012Q2

REPORT INFORMATION
  Report Type: 
  Country: None (occurrence: None)
  Receive Date: 20120628
  Receipt Date: 20120622
  Transmission Date: 20120825
  Serious: No
  Sender: FDA-Public Use
  Company Number: US-PFIZER INC-2012118504

PATIENT
  Sex: Female
  Weight: 63.492 kg

DRUGS (2)
  1. DIOVAN [Concomitant]
     Indication: HYPERTENSION
     Dosage: UNK
  2. ADVIL PM [Suspect]
     Indication: INSOMNIA
     Dosage: UNK, 1X/DAY

REACTIONS (7)
  - BLISTER [None]
  - EYE DISORDER [None]
  - BLOOD SODIUM DECREASED [None]
  - RENAL DISORDER [None]
  - RASH [None]
  - PRURITUS [None]
  - ERYTHEMA [None]
